FAERS Safety Report 5950950-X (Version None)
Quarter: 2008Q4

REPORT INFORMATION
  Report Type: 
  Country: None (occurrence: None)
  Receive Date: 20081112
  Receipt Date: 20081031
  Transmission Date: 20090506
  Serious: Yes (Other)
  Sender: FDA-Public Use
  Company Number: PE-PFIZER INC-2008088508

PATIENT
  Sex: Female

DRUGS (2)
  1. ZOLOFT [Suspect]
     Indication: DEPRESSION
     Dosage: DAILY DOSE:100MG
     Dates: start: 20080801
  2. KINABIDE [Concomitant]
     Dates: start: 20080825, end: 20081001

REACTIONS (2)
  - DEHYDRATION [None]
  - SYNCOPE [None]
